FAERS Safety Report 18217393 (Version 1)
Quarter: 2020Q3

REPORT INFORMATION
  Report Type: Spontaneous
  Country: IN (occurrence: IN)
  Receive Date: 20200901
  Receipt Date: 20200901
  Transmission Date: 20201103
  Serious: Yes (Hospitalization, Other)
  Sender: FDA-Public Use
  Company Number: IN-SUN PHARMACEUTICAL INDUSTRIES LTD-2019R1-219610

PATIENT
  Age: 53 Year
  Sex: Male

DRUGS (2)
  1. TORSEMIDE. [Suspect]
     Active Substance: TORSEMIDE
     Indication: OEDEMA
     Dosage: 10MG
     Route: 065
  2. SPIRONOLACTONE. [Suspect]
     Active Substance: SPIRONOLACTONE
     Indication: OEDEMA
     Dosage: 50 MILLIGRAM, DAILY
     Route: 065

REACTIONS (3)
  - Cardiac electrophysiologic study abnormal [Recovered/Resolved]
  - Quadriparesis [Recovered/Resolved]
  - Hypokalaemia [Recovering/Resolving]
